FAERS Safety Report 8003831-4 (Version None)
Quarter: 2011Q4

REPORT INFORMATION
  Report Type: 
  Country: None (occurrence: None)
  Receive Date: 20111222
  Receipt Date: 20111219
  Transmission Date: 20120403
  Serious: Yes (Other)
  Sender: FDA-Public Use
  Company Number: BR-ABBOTT-11P-020-0884626-00

PATIENT
  Sex: Male

DRUGS (1)
  1. AKINETON [Suspect]
     Indication: PARKINSON'S DISEASE

REACTIONS (7)
  - HALLUCINATION [None]
  - SLEEP DISORDER [None]
  - DELIRIUM [None]
  - RESTLESSNESS [None]
  - CONFUSIONAL STATE [None]
  - INSOMNIA [None]
  - AMNESIA [None]
